FAERS Safety Report 24795122 (Version 1)
Quarter: 2024Q4

REPORT INFORMATION
  Report Type: Spontaneous
  Country: CN (occurrence: CN)
  Receive Date: 20241231
  Receipt Date: 20241231
  Transmission Date: 20250114
  Serious: Yes (Other)
  Sender: MYLAN
  Company Number: CN-MYLANLABS-2024M1116573

PATIENT
  Age: 37 Year
  Sex: Female

DRUGS (2)
  1. CELEBREX [Suspect]
     Active Substance: CELECOXIB
     Indication: Fracture
     Dosage: 1 DOSAGE FORM, BID
     Route: 048
     Dates: start: 20241220, end: 20241221
  2. SODIUM ESCINATE [Concomitant]
     Active Substance: SODIUM ESCINATE
     Indication: Fracture
     Dosage: 1 DOSAGE FORM, BID
     Route: 048
     Dates: start: 20241220, end: 20241221

REACTIONS (3)
  - Erythema [Recovering/Resolving]
  - Pruritus [Recovering/Resolving]
  - Off label use [Unknown]

NARRATIVE: CASE EVENT DATE: 20241221
